FAERS Safety Report 4710567-1 (Version None)
Quarter: 2005Q3

REPORT INFORMATION
  Report Type: 
  Country: None (occurrence: None)
  Receive Date: 20050706
  Receipt Date: 20050706
  Transmission Date: 20060218
  Serious: Yes (Other)
  Sender: FDA-Public Use
  Company Number: None

PATIENT
  Age: 14 Year
  Sex: Male
  Weight: 84.8226 kg

DRUGS (1)
  1. STRATTERA [Suspect]

REACTIONS (1)
  - LIVER FUNCTION TEST ABNORMAL [None]
